FAERS Safety Report 8534826-X (Version None)
Quarter: 2012Q3

REPORT INFORMATION
  Report Type: 
  Country: None (occurrence: None)
  Receive Date: 20120724
  Receipt Date: 20120710
  Transmission Date: 20120928
  Serious: Yes (Other)
  Sender: FDA-Public Use
  Company Number: US-ENDO PHARMACEUTICALS INC.-OPCR20120322

PATIENT
  Sex: Male

DRUGS (2)
  1. OPANA ER [Concomitant]
     Dosage: UNKNOWN
     Route: 048
     Dates: start: 20070101, end: 20120101
  2. OPANA ER [Suspect]
     Indication: PAIN
     Dosage: UNKNOWN
     Route: 048
     Dates: start: 20120101

REACTIONS (4)
  - MALAISE [None]
  - DRUG INEFFECTIVE [None]
  - CONDITION AGGRAVATED [None]
  - CARDIAC DISORDER [None]
